FAERS Safety Report 8171121-5 (Version None)
Quarter: 2012Q1

REPORT INFORMATION
  Report Type: 
  Country: None (occurrence: None)
  Receive Date: 20120228
  Receipt Date: 20120217
  Transmission Date: 20120608
  Serious: Yes (Death)
  Sender: FDA-Public Use
  Company Number: CA-PFIZER INC-2012044472

PATIENT
  Age: 37 Year
  Sex: Male
  Weight: 63 kg

DRUGS (12)
  1. CRIZOTINIB [Suspect]
     Indication: NON-SMALL CELL LUNG CANCER
     Dosage: 250 MG, 2X/DAY
     Route: 048
     Dates: start: 20110913, end: 20120203
  2. VENTOLIN [Concomitant]
     Indication: ANTASTHMATIC DRUG LEVEL
     Dosage: UNK
  3. SYMBICORT [Concomitant]
     Indication: ANTASTHMATIC DRUG LEVEL
     Dosage: UNK
  4. DEXAMETHASONE [Concomitant]
     Indication: PAIN
     Dosage: UNK
     Dates: start: 20110926
  5. DOMPERIDONE [Concomitant]
     Indication: GASTROINTESTINAL MOTILITY DISORDER
     Dosage: UNK
  6. ONDANSETRON [Concomitant]
     Indication: NAUSEA
     Dosage: UNK
  7. GABAPENTIN [Concomitant]
     Indication: PAIN
     Dosage: UNK
     Dates: start: 20101101
  8. OXYCODONE [Concomitant]
     Indication: PAIN
     Dosage: UNK
     Dates: start: 20110101
  9. OXYGEN [Concomitant]
     Indication: RESPIRATORY THERAPY
     Dosage: UNK
  10. LOVENOX [Concomitant]
     Indication: PULMONARY EMBOLISM
     Dosage: UNK
  11. ATROVENT [Concomitant]
     Indication: ANTASTHMATIC DRUG LEVEL
     Dosage: UNK
  12. OXYCONTIN [Concomitant]
     Indication: PAIN
     Dosage: UNK
     Dates: start: 20110101

REACTIONS (1)
  - CONVULSION [None]
